FAERS Safety Report 7405091-1 (Version None)
Quarter: 2011Q2

REPORT INFORMATION
  Report Type: 
  Country: None (occurrence: None)
  Receive Date: 20110411
  Receipt Date: 20110404
  Transmission Date: 20111010
  Serious: Yes (Death)
  Sender: FDA-Public Use
  Company Number: GB-ABBOTT-10P-167-0690648-00

PATIENT
  Sex: Female
  Weight: 65 kg

DRUGS (11)
  1. HUMIRA [Suspect]
     Indication: RHEUMATOID ARTHRITIS
     Route: 058
     Dates: start: 20040515
  2. OMEPRAZOLE [Concomitant]
     Indication: RHEUMATOID ARTHRITIS
  3. METHOTREXATE [Concomitant]
     Indication: RHEUMATOID ARTHRITIS
     Dates: start: 20011008
  4. PREDNISOLONE [Concomitant]
  5. ALENDRONATE SODIUM [Concomitant]
     Indication: RHEUMATOID ARTHRITIS
  6. PREDNISOLONE [Concomitant]
     Indication: RHEUMATOID ARTHRITIS
  7. PREDNISOLONE [Concomitant]
  8. CALCEOS [Concomitant]
     Indication: RHEUMATOID ARTHRITIS
  9. DEXAMETHASONE [Concomitant]
     Indication: PRODUCT USED FOR UNKNOWN INDICATION
  10. AMIAS [Concomitant]
     Indication: RHEUMATOID ARTHRITIS
  11. FOLIC ACID [Concomitant]
     Indication: RHEUMATOID ARTHRITIS
     Dosage: ONCE A WEEK, THE DAY AFTERWARDS

REACTIONS (6)
  - LUNG CANCER METASTATIC [None]
  - HEADACHE [None]
  - DYSPRAXIA [None]
  - DISTURBANCE IN ATTENTION [None]
  - METASTASES TO CENTRAL NERVOUS SYSTEM [None]
  - MEMORY IMPAIRMENT [None]
